FAERS Safety Report 7486470-3 (Version None)
Quarter: 2011Q2

REPORT INFORMATION
  Report Type: 
  Country: None (occurrence: None)
  Receive Date: 20110517
  Receipt Date: 19960503
  Transmission Date: 20111010
  Serious: No
  Sender: FDA-Public Use
  Company Number: US-BAYER-PGF-2000338

PATIENT
  Age: 23 Year
  Sex: Female
  Weight: 46.364 kg

DRUGS (1)
  1. FEMSTAT [Suspect]
     Indication: FUNGAL INFECTION
     Dosage: 5 GRAMS
     Route: 067
     Dates: start: 19960429, end: 19960430

REACTIONS (1)
  - BLOODY DISCHARGE [None]
